FAERS Safety Report 6058123-X (Version None)
Quarter: 2009Q1

REPORT INFORMATION
  Report Type: 
  Country: None (occurrence: None)
  Receive Date: 20090130
  Receipt Date: 20090119
  Transmission Date: 20090719
  Serious: Yes (Disabling)
  Sender: FDA-Public Use
  Company Number: DK-RANBAXY-2009RR-20842

PATIENT
  Sex: Male
  Weight: 125 kg

DRUGS (3)
  1. SIMVASTATIN [Suspect]
     Indication: HYPERCHOLESTEROLAEMIA
     Dosage: 40 MG, QD
     Dates: start: 20070507, end: 20080701
  2. CENTIL MED KALIUMKLORID [Concomitant]
     Indication: HYPERTENSION
     Dosage: UNK
     Route: 048
     Dates: start: 20070705
  3. HEXANURAT [Concomitant]
     Indication: GOUTY ARTHRITIS
     Dosage: 100 MG, UNK
     Route: 048
     Dates: start: 20070327

REACTIONS (1)
  - HYPOAESTHESIA [None]
